FAERS Safety Report 9893659 (Version 1)
Quarter: 2014Q1

REPORT INFORMATION
  Report Type: Spontaneous
  Country: CA (occurrence: CA)
  Receive Date: 20140213
  Receipt Date: 20140213
  Transmission Date: 20141002
  Serious: Yes (Hospitalization)
  Sender: FDA-Public Use
  Company Number: CA-B.I. PHARMACEUTICALS,INC./RIDGEFIELD-2014-BI-06033CN

PATIENT
  Age: 83 Year
  Sex: Male
  Weight: 76 kg

DRUGS (5)
  1. PRADAXA [Suspect]
     Indication: PRODUCT USED FOR UNKNOWN INDICATION
     Dosage: 200 MG
     Route: 048
  2. ATORVASTATIN CALCIUM [Concomitant]
  3. FLORINEF [Concomitant]
  4. SINEMET 100/25 [Concomitant]
     Dosage: DOSE PER APPLICATION: 100/25
  5. VITAMIN D [Concomitant]

REACTIONS (6)
  - Blood creatinine increased [Recovered/Resolved]
  - Escherichia bacteraemia [Recovered/Resolved]
  - Haemoglobin decreased [Recovered/Resolved]
  - International normalised ratio increased [Recovered/Resolved]
  - Rectal haemorrhage [Recovered/Resolved]
  - Renal failure acute [Recovered/Resolved]
